FAERS Safety Report 16055990 (Version 1)
Quarter: 2019Q1

REPORT INFORMATION
  Report Type: Spontaneous
  Country: DE (occurrence: DE)
  Receive Date: 20190311
  Receipt Date: 20190311
  Transmission Date: 20190418
  Serious: Yes (Hospitalization, Other)
  Sender: FDA-Public Use
  Company Number: DE-AUROBINDO-AUR-APL-2018-011914

PATIENT

DRUGS (10)
  1. TAMSULOSIN [Concomitant]
     Active Substance: TAMSULOSIN
     Indication: BENIGN PROSTATIC HYPERPLASIA
     Dosage: UNK
     Route: 065
  2. TAVOR [Concomitant]
     Indication: PRODUCT USED FOR UNKNOWN INDICATION
     Dosage: 0.1 MILLIGRAM
     Route: 065
     Dates: start: 20140831
  3. NOVALGIN [Concomitant]
     Indication: PAIN
     Dosage: UNK
     Route: 065
  4. XELODA [Suspect]
     Active Substance: CAPECITABINE
     Dosage: 1000 MILLIGRAM
     Route: 042
     Dates: start: 20130218, end: 20130303
  5. XELODA [Suspect]
     Active Substance: CAPECITABINE
     Indication: COLORECTAL CANCER
     Dosage: 1720 MILLIGRAM, 1-14 DAYS AFTER BEVACIZUMAB INFUSION
     Route: 065
     Dates: start: 20130128, end: 20130210
  6. MST [Concomitant]
     Indication: PAIN
     Dosage: UNK
     Route: 065
     Dates: start: 20130809
  7. XELODA [Suspect]
     Active Substance: CAPECITABINE
     Dosage: 1000 MILLIGRAM
     Route: 042
     Dates: start: 20130311, end: 20130324
  8. PANTOZOL [Concomitant]
     Active Substance: PANTOPRAZOLE SODIUM
     Indication: ABDOMINAL PAIN UPPER
     Dosage: 40 MILLIGRAM
     Route: 065
  9. OXALIPLATIN. [Suspect]
     Active Substance: OXALIPLATIN
     Indication: COLORECTAL CANCER
     Dosage: 223.6 MILLIGRAM, 3 WEEK
     Route: 042
     Dates: start: 20130128, end: 20130311
  10. AVASTIN [Suspect]
     Active Substance: BEVACIZUMAB
     Indication: COLORECTAL CANCER METASTATIC
     Dosage: 487.5 MILLIGRAM
     Route: 042
     Dates: start: 20130128, end: 20130311

REACTIONS (9)
  - Erythema multiforme [Not Recovered/Not Resolved]
  - Dyspnoea [Recovered/Resolved]
  - Infection [Recovered/Resolved]
  - Palmar-plantar erythrodysaesthesia syndrome [Not Recovered/Not Resolved]
  - Diarrhoea [Recovered/Resolved]
  - Weight decreased [Not Recovered/Not Resolved]
  - General physical health deterioration [Recovered/Resolved]
  - Fatigue [Not Recovered/Not Resolved]
  - Pyrexia [Recovered/Resolved]

NARRATIVE: CASE EVENT DATE: 20130402
